FAERS Safety Report 6662198-4 (Version None)
Quarter: 2010Q1

REPORT INFORMATION
  Report Type: 
  Country: None (occurrence: None)
  Receive Date: 20100331
  Receipt Date: 20100323
  Transmission Date: 20100710
  Serious: Yes (Death, Hospitalization)
  Sender: FDA-Public Use
  Company Number: ES-AMGEN-KDC401521

PATIENT
  Sex: Male
  Weight: 72 kg

DRUGS (10)
  1. PANITUMUMAB [Suspect]
     Indication: COLORECTAL CANCER
     Route: 042
     Dates: start: 20091202, end: 20100311
  2. FLUOROURACIL [Suspect]
     Route: 042
     Dates: start: 20091202, end: 20100312
  3. FOLINIC ACID [Suspect]
     Route: 042
     Dates: start: 20091202, end: 20100312
  4. OXALIPLATIN [Suspect]
     Route: 042
     Dates: start: 20091202, end: 20100312
  5. OMEPRAZOLE [Concomitant]
     Route: 048
     Dates: start: 20091118
  6. PARACETAMOL [Concomitant]
     Route: 048
     Dates: start: 20091118
  7. NOLOTIL /NOR/ [Concomitant]
     Route: 048
     Dates: start: 20091118
  8. ADOLONTA [Concomitant]
     Route: 048
     Dates: start: 20091118
  9. PRIMPERAN INJ [Concomitant]
     Route: 048
     Dates: start: 20091118
  10. ALDACTONE [Concomitant]
     Route: 048
     Dates: start: 20091118

REACTIONS (3)
  - BRONCHOPNEUMONIA [None]
  - PNEUMOMEDIASTINUM [None]
  - RESPIRATORY FAILURE [None]
